FAERS Safety Report 4878989-6 (Version None)
Quarter: 2006Q1

REPORT INFORMATION
  Report Type: 
  Country: None (occurrence: None)
  Receive Date: 20060112
  Receipt Date: 20050421
  Transmission Date: 20060701
  Serious: Yes (Hospitalization, Disabling)
  Sender: FDA-Public Use
  Company Number: US-MERCK-0504USA04246

PATIENT
  Age: 56 Year
  Sex: Male
  Weight: 75 kg

DRUGS (1)
  1. VIOXX [Suspect]
     Indication: ARTHRALGIA
     Route: 048
     Dates: start: 20000101, end: 20040101

REACTIONS (11)
  - ANGINA UNSTABLE [None]
  - ARACHNOIDITIS [None]
  - BACK DISORDER [None]
  - CEREBROVASCULAR ACCIDENT [None]
  - DYSTHYMIC DISORDER [None]
  - MYOCARDIAL INFARCTION [None]
  - NIGHT SWEATS [None]
  - OBSTRUCTIVE AIRWAYS DISORDER [None]
  - PAIN [None]
  - SPINAL CORD INFECTION [None]
  - TOOTH INFECTION [None]
